FAERS Safety Report 6683914-1 (Version None)
Quarter: 2010Q2

REPORT INFORMATION
  Report Type: 
  Country: None (occurrence: None)
  Receive Date: 20100416
  Receipt Date: 20100409
  Transmission Date: 20101027
  Serious: Yes (Death, Hospitalization, Other)
  Sender: FDA-Public Use
  Company Number: BR-PFIZER INC-2010045166

PATIENT
  Age: 73 Year
  Sex: Male

DRUGS (11)
  1. REVATIO [Suspect]
     Indication: PULMONARY ARTERIAL HYPERTENSION
     Dosage: 20 MG, 3X/DAY
     Route: 048
     Dates: start: 20100219
  2. CARVEDILOL [Concomitant]
     Indication: CARDIAC DISORDER
     Dosage: UNK
  3. ALDACTONE [Concomitant]
     Indication: CARDIAC DISORDER
     Dosage: UNK
  4. RAMIPRIL [Concomitant]
     Indication: CARDIAC DISORDER
     Dosage: UNK
  5. EXELON [Concomitant]
     Indication: CEREBROVASCULAR ACCIDENT PROPHYLAXIS
     Dosage: UNK
  6. MIRTAZAPINE [Concomitant]
     Indication: DEPRESSION
     Dosage: UNK
  7. LEXOTAN [Concomitant]
     Indication: ANXIOLYTIC THERAPY
     Dosage: UNK
  8. MIFLASONA [Concomitant]
     Indication: COUGH
     Dosage: UNK
     Dates: end: 20100201
  9. PANTOPRAZOLE [Concomitant]
     Indication: GASTROOESOPHAGEAL REFLUX DISEASE
     Dosage: UNK
  10. SYNTHROID [Concomitant]
     Indication: HYPOTHYROIDISM
     Dosage: UNK
  11. LIPITOR [Concomitant]
     Indication: BLOOD CHOLESTEROL ABNORMAL
     Dosage: UNK

REACTIONS (9)
  - ACUTE RESPIRATORY FAILURE [None]
  - BACK INJURY [None]
  - CARDIAC FAILURE CONGESTIVE [None]
  - FALL [None]
  - HYPOTHYROIDISM [None]
  - MULTI-ORGAN FAILURE [None]
  - PULMONARY HYPERTENSION [None]
  - RESPIRATORY ARREST [None]
  - SYNCOPE [None]
